FAERS Safety Report 14226348 (Version 1)
Quarter: 2017Q4

REPORT INFORMATION
  Report Type: Report from Study
  Country: CA (occurrence: CA)
  Receive Date: 20171127
  Receipt Date: 20171127
  Transmission Date: 20180321
  Serious: Yes (Death, Life-Threatening)
  Sender: FDA-Public Use
  Company Number: CA-TOLMAR, INC.-2017CA015201

PATIENT

DRUGS (1)
  1. ELIGARD [Suspect]
     Active Substance: LEUPROLIDE ACETATE
     Indication: PROSTATE CANCER
     Dosage: 30 MG,EVERY 16 WEEKS
     Route: 058
     Dates: start: 20170728

REACTIONS (2)
  - Terminal state [Unknown]
  - Death [Fatal]
